FAERS Safety Report 8150600-0 (Version None)
Quarter: 2012Q1

REPORT INFORMATION
  Report Type: 
  Country: None (occurrence: None)
  Receive Date: 20120220
  Receipt Date: 20120206
  Transmission Date: 20120608
  Serious: Yes (Hospitalization, Disabling, Other)
  Sender: FDA-Public Use
  Company Number: PHEH2011US009058

PATIENT
  Sex: Female

DRUGS (6)
  1. CELEBREX [Concomitant]
  2. CLOPIDOGREL [Concomitant]
  3. LEXAPRO [Concomitant]
  4. METAPROTERENOL [Concomitant]
  5. TASIGNA [Suspect]
     Dosage: 400 MG, DAILY
     Route: 048
     Dates: start: 20060710, end: 20111001
  6. TASIGNA [Suspect]
     Indication: CHRONIC MYELOID LEUKAEMIA
     Dosage: 400 MG, BID
     Route: 048
     Dates: start: 20060622, end: 20060707

REACTIONS (13)
  - WEIGHT DECREASED [None]
  - RASH [None]
  - WHITE BLOOD CELL COUNT INCREASED [None]
  - DIARRHOEA [None]
  - DISCOMFORT [None]
  - DECREASED APPETITE [None]
  - ANAEMIA [None]
  - PERIPHERAL ARTERIAL OCCLUSIVE DISEASE [None]
  - BONE PAIN [None]
  - RED BLOOD CELL SEDIMENTATION RATE INCREASED [None]
  - PLATELET COUNT INCREASED [None]
  - PAIN [None]
  - HEADACHE [None]
